FAERS Safety Report 6546189-X (Version None)
Quarter: 2010Q1

REPORT INFORMATION
  Report Type: 
  Country: None (occurrence: None)
  Receive Date: 20100120
  Receipt Date: 20100104
  Transmission Date: 20100710
  Serious: Yes (Hospitalization)
  Sender: FDA-Public Use
  Company Number: 2009AC000289

PATIENT
  Age: 65 Year
  Sex: Female

DRUGS (18)
  1. DIGOXIN [Suspect]
     Dosage: 0.25 MG;QD;PO
     Route: 048
     Dates: start: 19990101
  2. CRESTOR [Concomitant]
  3. METFORMIN [Concomitant]
  4. LASIX [Concomitant]
  5. PRILOSEC [Concomitant]
  6. FLUOXETINE [Concomitant]
  7. TOPROL-XL [Concomitant]
  8. LISINOPRIL [Concomitant]
  9. MIRAPEX [Concomitant]
  10. PLAVIX [Concomitant]
  11. ASPIRIN [Concomitant]
  12. LISINOPRIL [Concomitant]
  13. PLAVIX [Concomitant]
  14. COUMADIN [Concomitant]
  15. PROZAC [Concomitant]
  16. MIRAPEX [Concomitant]
  17. GLUCOPHAGE [Concomitant]
  18. METOPROLOL [Concomitant]

REACTIONS (23)
  - ANGINA UNSTABLE [None]
  - ARTERIOSCLEROSIS CORONARY ARTERY [None]
  - ASTHENIA [None]
  - ATRIAL FIBRILLATION [None]
  - BREAST PAIN [None]
  - CARDIAC FAILURE CONGESTIVE [None]
  - COUGH [None]
  - DIABETES MELLITUS [None]
  - DIAPHRAGMATIC PARALYSIS [None]
  - DYSPNOEA [None]
  - ECONOMIC PROBLEM [None]
  - EXERCISE TOLERANCE DECREASED [None]
  - FATIGUE [None]
  - HAEMOPTYSIS [None]
  - HYPERTENSION [None]
  - ISCHAEMIA [None]
  - ISCHAEMIC CARDIOMYOPATHY [None]
  - MALAISE [None]
  - MULTIPLE INJURIES [None]
  - RENAL FAILURE [None]
  - SURGERY [None]
  - UNEVALUABLE EVENT [None]
  - WHEEZING [None]
